FAERS Safety Report 4509425-7 (Version None)
Quarter: 2004Q4

REPORT INFORMATION
  Report Type: 
  Country: None (occurrence: None)
  Receive Date: 20041025
  Receipt Date: 20040629
  Transmission Date: 20050328
  Serious: Yes (Hospitalization)
  Sender: FDA-Public Use
  Company Number: US-JNJFOC-20040700238

PATIENT
  Age: 77 Year
  Sex: Female
  Weight: 72.1219 kg

DRUGS (18)
  1. INFLIXIMAB (INFLIXIMAB, RECOMBINANT) LYOPHILIZED POWDER [Suspect]
     Indication: RHEUMATOID ARTHRITIS
     Dosage: INTRAVENOUS
     Route: 042
     Dates: start: 20010822
  2. ATENOLOL [Concomitant]
  3. ENALAPRIL MALEATE [Concomitant]
  4. STARLIX [Concomitant]
  5. WELLBUTRIN [Concomitant]
  6. ANTIVERT [Concomitant]
  7. ASPIRIN [Concomitant]
  8. PREDNISONE [Concomitant]
  9. SYNTHROID [Concomitant]
  10. DEMADEX [Concomitant]
  11. POTASSIUM [Concomitant]
  12. COMBIVENT [Concomitant]
  13. ZANTAC [Concomitant]
  14. DARVOCET [Concomitant]
  15. ACTONEL [Concomitant]
  16. CALCIUM [Concomitant]
  17. CLONIDINE [Concomitant]
  18. MICARDIS [Concomitant]

REACTIONS (1)
  - PNEUMONIA [None]
